FAERS Safety Report 6693651-5 (Version None)
Quarter: 2010Q2

REPORT INFORMATION
  Report Type: 
  Country: None (occurrence: None)
  Receive Date: 20100420
  Receipt Date: 20100407
  Transmission Date: 20101027
  Serious: Yes (Hospitalization)
  Sender: FDA-Public Use
  Company Number: CIP10000796

PATIENT
  Age: 71 Year
  Sex: Female

DRUGS (6)
  1. FURADANTIN [Suspect]
     Indication: URINARY TRACT INFECTION
     Dosage: 50 MG THREE TIMES A DAILY,ORAL
     Route: 048
     Dates: start: 20100315, end: 20100321
  2. IRBESARTAN [Concomitant]
  3. LERCANIDIPINE [Concomitant]
  4. ALPRAZOLAM [Concomitant]
  5. MAGNE BE /00869191/ (MAGNESIUM LACTATE, PYRIDOXINE HYDROCHLORIDE) [Concomitant]
  6. PRAVASTATIN [Concomitant]

REACTIONS (5)
  - DYSURIA [None]
  - EOSINOPHILIA [None]
  - INFLAMMATION [None]
  - LEFT VENTRICULAR FAILURE [None]
  - PYREXIA [None]
